FAERS Safety Report 6870128-5 (Version None)
Quarter: 2010Q3

REPORT INFORMATION
  Report Type: 
  Country: None (occurrence: None)
  Receive Date: 20100722
  Receipt Date: 20100715
  Transmission Date: 20110219
  Serious: Yes (Other)
  Sender: FDA-Public Use
  Company Number: CA-PFIZER INC-2010089027

PATIENT
  Sex: Female

DRUGS (6)
  1. ZELDOX [Suspect]
     Indication: DEPRESSION
     Dosage: 40 MG, 1X/DAY AFTER SUPPER X 10 DAYS
     Route: 048
  2. CHLORDIAZEPOXIDE [Concomitant]
     Dosage: UNK
  3. TOPIRAMATE [Concomitant]
     Dosage: UNK
  4. GABAPENTIN [Concomitant]
     Dosage: UNK
  5. NAPROXEN [Concomitant]
     Dosage: UNK
  6. CYCLOBENZAPRINE [Concomitant]
     Dosage: UNK

REACTIONS (5)
  - ANGER [None]
  - DYSPNOEA [None]
  - MOOD ALTERED [None]
  - SUICIDAL IDEATION [None]
  - TREMOR [None]
